FAERS Safety Report 7303694-6 (Version None)
Quarter: 2011Q1

REPORT INFORMATION
  Report Type: 
  Country: None (occurrence: None)
  Receive Date: 20110221
  Receipt Date: 20110211
  Transmission Date: 20110831
  Serious: Yes (Hospitalization)
  Sender: FDA-Public Use
  Company Number: BR-ROCHE-730725

PATIENT
  Sex: Female
  Weight: 100 kg

DRUGS (24)
  1. TOCILIZUMAB [Suspect]
     Route: 042
     Dates: start: 20100621, end: 20100621
  2. TOCILIZUMAB [Suspect]
     Route: 042
     Dates: start: 20100720, end: 20100720
  3. MOTILIUM [Concomitant]
  4. CITONEURIN [Concomitant]
  5. LANTUS [Concomitant]
  6. METHOTREXATE [Concomitant]
  7. TOCILIZUMAB [Suspect]
     Route: 042
     Dates: start: 20100524, end: 20100524
  8. PREDSIM [Concomitant]
  9. NAPRIX [Concomitant]
  10. TOCILIZUMAB [Suspect]
     Route: 042
     Dates: start: 20091026, end: 20091026
  11. MACRODANTINA [Concomitant]
  12. LYRICA [Concomitant]
  13. TOCILIZUMAB [Suspect]
     Indication: RHEUMATOID ARTHRITIS
     Dosage: FORM:INFUSION, ROUTE:ENDOVENOUS
     Route: 042
     Dates: start: 20090924, end: 20090924
  14. TOCILIZUMAB [Suspect]
     Route: 042
     Dates: start: 20100301, end: 20100301
  15. TOCILIZUMAB [Suspect]
     Route: 042
     Dates: start: 20100426, end: 20100426
  16. TOCILIZUMAB [Suspect]
     Route: 042
     Dates: start: 20101123, end: 20101123
  17. GALVUSMET [Concomitant]
     Dosage: DOSE: 50/800 MG/TAB
  18. TOCILIZUMAB [Suspect]
     Route: 042
     Dates: start: 20100329, end: 20100329
  19. TOCILIZUMAB [Suspect]
     Route: 042
     Dates: start: 20100928, end: 20100928
  20. TOCILIZUMAB [Suspect]
     Route: 042
     Dates: start: 20101026, end: 20101026
  21. NEXIUM [Concomitant]
  22. VIVACOR [Concomitant]
  23. ENDOFOLIN [Concomitant]
  24. TEGRETOL [Concomitant]

REACTIONS (5)
  - ARTHROPATHY [None]
  - LOWER RESPIRATORY TRACT INFECTION [None]
  - HERPES VIRUS INFECTION [None]
  - IMMUNODEFICIENCY [None]
  - URINARY TRACT INFECTION [None]
